FAERS Safety Report 24129878 (Version 6)
Quarter: 2025Q3

REPORT INFORMATION
  Report Type: Report from Study
  Country: EU (occurrence: EU)
  Receive Date: 20240724
  Receipt Date: 20250715
  Transmission Date: 20251021
  Serious: Yes (Death)
  Sender: ROCHE
  Company Number: EU-ML39632-2036111-0

PATIENT
  Age: 61 Year
  Sex: Female

DRUGS (7)
  1. OCREVUS [Suspect]
     Active Substance: OCRELIZUMAB
     Indication: Relapsing multiple sclerosis
     Route: 042
     Dates: start: 20191217, end: 20200107
  2. OCREVUS [Suspect]
     Active Substance: OCRELIZUMAB
     Route: 042
     Dates: start: 20200707, end: 20240116
  3. FLUOXETINE HYDROCHLORIDE [Concomitant]
     Active Substance: FLUOXETINE HYDROCHLORIDE
     Indication: Depression
     Route: 048
     Dates: start: 20201019
  4. VAXIGRIP [Concomitant]
     Active Substance: INFLUENZA VIRUS VACCINE
     Route: 030
     Dates: start: 20211004, end: 20211004
  5. Comirnaty [Concomitant]
     Route: 030
     Dates: start: 20211004, end: 20211004
  6. Comirnaty [Concomitant]
     Route: 030
     Dates: start: 20220503, end: 20220503
  7. RAMIPRIL [Concomitant]
     Active Substance: RAMIPRIL
     Route: 048

REACTIONS (1)
  - Death [Fatal]

NARRATIVE: CASE EVENT DATE: 20240712
